FAERS Safety Report 9122083 (Version 1)
Quarter: 2013Q1

REPORT INFORMATION
  Report Type: Spontaneous
  Country: US (occurrence: None)
  Receive Date: 20130125
  Receipt Date: 20130125
  Transmission Date: 20140127
  Serious: No
  Sender: FDA-Public Use
  Company Number: 2012US-004420

PATIENT
  Age: 27 Year
  Sex: Female

DRUGS (2)
  1. OMONTYS (PEGINESATIDE) SOLUTION FOR INJECTION [Suspect]
     Indication: NEPHROGENIC ANAEMIA
     Route: 042
     Dates: start: 20121005, end: 20121005
  2. ARANESP (DARBEPOETIN ALFA) [Concomitant]

REACTIONS (4)
  - Flushing [None]
  - Erythema [None]
  - Pruritus [None]
  - Nausea [None]
